FAERS Safety Report 8134378-2 (Version None)
Quarter: 2012Q1

REPORT INFORMATION
  Report Type: 
  Country: None (occurrence: None)
  Receive Date: 20120103
  Receipt Date: 20111109
  Transmission Date: 20120608
  Serious: No
  Sender: FDA-Public Use
  Company Number: AE-2011-003257

PATIENT
  Sex: Male

DRUGS (4)
  1. RIBAVIRIN [Concomitant]
  2. INTERFERON [Concomitant]
  3. INCIVEK [Suspect]
     Dosage: 2250 MG (750 MG, 1 IN 8 HR), ORAL
     Route: 048
     Dates: start: 20110801
  4. MILK THISTLE [Concomitant]

REACTIONS (4)
  - DRY SKIN [None]
  - COUGH [None]
  - HEADACHE [None]
  - INSOMNIA [None]
